FAERS Safety Report 4519684-2 (Version None)
Quarter: 2004Q4

REPORT INFORMATION
  Report Type: 
  Country: None (occurrence: None)
  Receive Date: 20041206
  Receipt Date: 20041102
  Transmission Date: 20050328
  Serious: Yes (Hospitalization)
  Sender: FDA-Public Use
  Company Number: PHFR2004GB04104

PATIENT
  Age: 28 Year
  Sex: Male

DRUGS (4)
  1. VALPROATE SODIUM [Concomitant]
     Indication: EPILEPSY
     Dosage: 300MG/DAY
     Route: 048
  2. PROPRANOLOL [Concomitant]
     Indication: BLOOD PRESSURE
     Dosage: 20MG/DAY
     Dates: start: 20040401
  3. CLOZARIL [Suspect]
     Indication: SCHIZOPHRENIA
     Dosage: UNK, UNK
     Route: 048
     Dates: start: 20040220, end: 20041027
  4. CLOZARIL [Suspect]
     Route: 048
     Dates: start: 20041102, end: 20041108

REACTIONS (3)
  - INFECTION [None]
  - RASH [None]
  - SEPSIS [None]
